FAERS Safety Report 10599175 (Version 1)
Quarter: 2014Q4

REPORT INFORMATION
  Report Type: Report from Study
  Country: US (occurrence: US)
  Receive Date: 20141121
  Receipt Date: 20141121
  Transmission Date: 20150529
  Serious: Yes (Disabling)
  Sender: FDA-Public Use
  Company Number: PHEH2014US022541

PATIENT
  Age: 38 Year
  Sex: Female

DRUGS (2)
  1. DIFLUCAN [Concomitant]
     Active Substance: FLUCONAZOLE
     Indication: FUNGAL INFECTION
     Dosage: 100 MG, QD
     Route: 065
     Dates: end: 20141109
  2. GILENYA [Suspect]
     Active Substance: FINGOLIMOD HYDROCHLORIDE
     Indication: MULTIPLE SCLEROSIS
     Dosage: 0.5 MG, QD
     Route: 048
     Dates: start: 20141008

REACTIONS (7)
  - Muscular weakness [Recovering/Resolving]
  - Fall [Recovering/Resolving]
  - Fatigue [Recovering/Resolving]
  - Influenza like illness [Not Recovered/Not Resolved]
  - Fungal infection [Recovering/Resolving]
  - Muscle disorder [Unknown]
  - Feeling abnormal [Not Recovered/Not Resolved]

NARRATIVE: CASE EVENT DATE: 20141101
